FAERS Safety Report 9072601 (Version 1)
Quarter: 2013Q1

REPORT INFORMATION
  Report Type: Report from Study
  Country: US (occurrence: US)
  Receive Date: 20130129
  Receipt Date: 20130129
  Transmission Date: 20140127
  Serious: No
  Sender: FDA-Public Use
  Company Number: US-ABBOTT-12P-163-0920588-00

PATIENT
  Age: 35 Year
  Sex: Female

DRUGS (6)
  1. HUMIRA 40 MG/0.8 ML PEN [Suspect]
     Indication: CROHN^S DISEASE
     Dosage: 160 MG X 1 LOADING DOSE
     Dates: start: 20120329, end: 20120329
  2. HUMIRA 40 MG/0.8 ML PEN [Suspect]
  3. CITALOPRAM [Concomitant]
     Indication: DEPRESSION
     Dosage: 20  MG DAILY
  4. HYDROCHLOROT [Concomitant]
     Indication: DIURETIC THERAPY
     Dosage: 25 MG DAILY
  5. OMEPRAZOLE [Concomitant]
     Indication: GASTRIC DISORDER
  6. OMEPRAZOLE [Concomitant]
     Indication: PROPHYLAXIS

REACTIONS (1)
  - Injection site pain [Recovered/Resolved]
